FAERS Safety Report 4896385-2 (Version None)
Quarter: 2006Q1

REPORT INFORMATION
  Report Type: 
  Country: None (occurrence: None)
  Receive Date: 20060131
  Receipt Date: 20060125
  Transmission Date: 20060701
  Serious: Yes (Death, Hospitalization)
  Sender: FDA-Public Use
  Company Number: PHBS2006JP01465

PATIENT
  Age: 50 Year
  Sex: Male

DRUGS (5)
  1. DERMOVATE [Concomitant]
     Route: 065
     Dates: end: 20051222
  2. NEORAL [Suspect]
     Indication: PSORIASIS
     Dosage: 100 MG/D
     Route: 048
     Dates: start: 20051207, end: 20051222
  3. POLARAMINE [Concomitant]
     Dosage: 6 MG/D
     Route: 048
     Dates: end: 20051222
  4. ALLELOCK [Concomitant]
     Dosage: 10 MG/D
     Route: 048
     Dates: end: 20051222
  5. GASTER D [Concomitant]
     Dosage: 20 MG/D
     Route: 048
     Dates: start: 20051217, end: 20051222

REACTIONS (3)
  - BLOOD AMYLASE INCREASED [None]
  - INTESTINAL OBSTRUCTION [None]
  - PANCREATITIS [None]
